FAERS Safety Report 18186065 (Version 1)
Quarter: 2020Q3

REPORT INFORMATION
  Report Type: Spontaneous
  Country: FR (occurrence: FR)
  Receive Date: 20200824
  Receipt Date: 20200824
  Transmission Date: 20201103
  Serious: Yes (Other)
  Sender: FDA-Public Use
  Company Number: FR-BAUSCH-BL-2020-023492

PATIENT
  Age: 53 Year
  Sex: Female
  Weight: 93 kg

DRUGS (3)
  1. CARTEOL [Concomitant]
     Indication: PRODUCT USED FOR UNKNOWN INDICATION
  2. ANDROCUR [Suspect]
     Active Substance: CYPROTERONE ACETATE
     Indication: HYPERPLASIA ADRENAL
     Route: 048
     Dates: start: 1983, end: 20190802
  3. HYDROCORTISONE. [Suspect]
     Active Substance: HYDROCORTISONE
     Indication: HYPERPLASIA ADRENAL
     Route: 048
     Dates: start: 1983

REACTIONS (1)
  - Meningioma [Not Recovered/Not Resolved]

NARRATIVE: CASE EVENT DATE: 20190731
